FAERS Safety Report 5928842-1 (Version None)
Quarter: 2008Q4

REPORT INFORMATION
  Report Type: 
  Country: None (occurrence: None)
  Receive Date: 20081021
  Receipt Date: 20081008
  Transmission Date: 20090506
  Serious: No
  Sender: FDA-Public Use
  Company Number: 2008-185006-NL

PATIENT
  Sex: Male

DRUGS (1)
  1. MIRTAZAPINE [Suspect]
     Indication: DEPRESSION
     Dosage: DF
     Dates: start: 20070101

REACTIONS (1)
  - PARKINSONISM [None]
